FAERS Safety Report 21668197 (Version 1)
Quarter: 2022Q4

REPORT INFORMATION
  Report Type: Spontaneous
  Country: ES (occurrence: ES)
  Receive Date: 20221201
  Receipt Date: 20221201
  Transmission Date: 20230112
  Serious: Yes (Other)
  Sender: FDA-Public Use
  Company Number: None

PATIENT
  Age: 82 Year
  Sex: Male

DRUGS (9)
  1. LACOSAMIDE [Suspect]
     Active Substance: LACOSAMIDE
     Indication: Agitation
     Dosage: UNIT DOSE : 100 MG , FREQUENCY TIME : 12 HOURS, DURATION :9 DAYS
     Route: 065
     Dates: start: 20220818, end: 20220826
  2. ATORVASTATIN [Suspect]
     Active Substance: ATORVASTATIN
     Indication: Ischaemic stroke
     Dosage: UNIT DOSE :80 MG  , FREQUENCY TIME : 1 DAY , DURATION : 72 DAYS
     Route: 065
     Dates: start: 20220622, end: 20220901
  3. ARIPIPRAZOLE [Suspect]
     Active Substance: ARIPIPRAZOLE
     Indication: Agitation
     Dosage: ARIPIPRAZOL (2933A), UNIT DOSE : 4.5 MG , FREQUENCY TIME :  1 TOTAL, DURATION :1 DAY
     Route: 065
     Dates: start: 20220821, end: 20220821
  4. CLONAZEPAM [Suspect]
     Active Substance: CLONAZEPAM
     Indication: Agitation
     Dosage: CLONAZEPAM (635A), UNIT DOSE :   0.5 MG, FREQUENCY TIME :  3 TOTAL, DURATION : 2 DAYS
     Route: 065
     Dates: start: 20220820, end: 20220821
  5. ACETILSALICILIC ACID [Concomitant]
     Indication: Ischaemic cardiomyopathy
     Dosage: ACETILSALICILICO ACIDO (176A), UNIT DOSE :300 MG  , FREQUENCY TIME : 1 DAY
     Dates: start: 20220726
  6. ENOXAPARIN SODIUM [Concomitant]
     Active Substance: ENOXAPARIN SODIUM
     Indication: Ischaemic stroke
     Dosage: ENOXAPARIN SODIUM (2482SO), UNIT DOSE : 40 MG , FREQUENCY TIME : 1 DAY
     Dates: start: 20220818
  7. PANTOPRAZOLE SODIUM [Concomitant]
     Active Substance: PANTOPRAZOLE SODIUM
     Indication: Gastritis prophylaxis
     Dosage: PANTOPRAZOL (7275A), UNIT DOSE :40 MG  , FREQUENCY TIME : 1 DAY
     Dates: start: 20220812
  8. CARBAMAZEPINE [Concomitant]
     Active Substance: CARBAMAZEPINE
     Indication: Product used for unknown indication
     Dosage: CARBAMAZEPINA (561A), UNIT DOSE :   200MG, FREQUENCY TIME :  8 HOURS, DURATION : 1 YEARS
     Dates: start: 2021, end: 20220905
  9. CLOPIDOGREL [Concomitant]
     Active Substance: CLOPIDOGREL BISULFATE
     Indication: Cerebrovascular accident prophylaxis
     Dosage: CLOPIDOGREL (7300A), UNIT DOSE : 75 MG , FREQUENCY TIME : 1 DAY
     Dates: start: 20220726

REACTIONS (1)
  - Hepatitis cholestatic [Recovering/Resolving]

NARRATIVE: CASE EVENT DATE: 20220824
